FAERS Safety Report 5567563-4 (Version None)
Quarter: 2007Q4

REPORT INFORMATION
  Report Type: 
  Country: None (occurrence: None)
  Receive Date: 20071214
  Receipt Date: 20071203
  Transmission Date: 20080405
  Serious: Yes (Other)
  Sender: FDA-Public Use
  Company Number: 2007AL005175

PATIENT
  Age: 28 Year
  Sex: Female

DRUGS (4)
  1. FEVERALL [Suspect]
     Indication: MIGRAINE
     Dosage: PRN
     Dates: start: 20070811, end: 20070811
  2. CHILDREN'S APAP ELIXIR (ACETAMINOPHEN) (ALPHARMA) (INFANTS' APAP DROPS [Suspect]
     Indication: MIGRAINE
     Dates: start: 20070811, end: 20070811
  3. MIDRID [Concomitant]
  4. CODEINE [Concomitant]

REACTIONS (3)
  - ASTHENIA [None]
  - DIZZINESS [None]
  - HYPOAESTHESIA [None]
